FAERS Safety Report 5199874-9 (Version None)
Quarter: 2007Q1

REPORT INFORMATION
  Report Type: 
  Country: None (occurrence: None)
  Receive Date: 20070102
  Receipt Date: 20070102
  Transmission Date: 20070707
  Serious: Yes (Other)
  Sender: FDA-Public Use
  Company Number: None

PATIENT
  Age: 63 Year
  Sex: Female
  Weight: 81.6475 kg

DRUGS (1)
  1. FENTANYL [Suspect]
     Indication: HIP FRACTURE
     Dosage: 100 MG SKIN PATCH 72 HOURS
     Route: 062
     Dates: start: 20061202, end: 20061227

REACTIONS (9)
  - CONTRAINDICATION TO MEDICAL TREATMENT [None]
  - COUGH [None]
  - DRUG INTERACTION [None]
  - DYSPNOEA [None]
  - FATIGUE [None]
  - INCOHERENT [None]
  - SPEECH DISORDER [None]
  - THINKING ABNORMAL [None]
  - WHEEZING [None]
